FAERS Safety Report 19420981 (Version 1)
Quarter: 2021Q2

REPORT INFORMATION
  Report Type: Spontaneous
  Country: US (occurrence: US)
  Receive Date: 20210615
  Receipt Date: 20210615
  Transmission Date: 20210717
  Serious: Yes (Other)
  Sender: FDA-Public Use
  Company Number: US-ELI_LILLY_AND_COMPANY-US202106002448

PATIENT
  Sex: Female

DRUGS (1)
  1. EMGALITY [Suspect]
     Active Substance: GALCANEZUMAB-GNLM
     Indication: MIGRAINE
     Dosage: 120 MG, UNKNOWN
     Route: 058

REACTIONS (11)
  - Eye discharge [Unknown]
  - Oral discharge [Unknown]
  - Vertigo [Unknown]
  - Pneumothorax [Unknown]
  - Rib fracture [Unknown]
  - Seizure [Unknown]
  - Cerebrovascular accident [Unknown]
  - Injury [Unknown]
  - Pain [Unknown]
  - Drug ineffective [Unknown]
  - Ear pain [Unknown]
